FAERS Safety Report 20772563 (Version 1)
Quarter: 2022Q2

REPORT INFORMATION
  Report Type: Spontaneous
  Country: CO (occurrence: CO)
  Receive Date: 20220502
  Receipt Date: 20220502
  Transmission Date: 20220720
  Serious: Yes (Disabling)
  Sender: FDA-Public Use
  Company Number: CO-PFIZER INC-202200609541

PATIENT
  Age: 62 Year
  Sex: Female

DRUGS (1)
  1. ENBREL [Suspect]
     Active Substance: ETANERCEPT
     Indication: Rheumatoid arthritis
     Dosage: 50 MG, UNSPECIFIED FREQUENCY
     Route: 058
     Dates: start: 20220420

REACTIONS (1)
  - Gait inability [Unknown]
